FAERS Safety Report 8922576 (Version 2)
Quarter: 2012Q4

REPORT INFORMATION
  Report Type: 
  Country: DE (occurrence: DE)
  Receive Date: 20121123
  Receipt Date: 20121213
  Transmission Date: 20130627
  Serious: Yes (Other)
  Sender: FDA-Public Use
  Company Number: DE-ROCHE-GNE317165

PATIENT
  Age: 30 Year
  Sex: Female

DRUGS (1)
  1. OMALIZUMAB [Suspect]
     Indication: SYSTEMIC MASTOCYTOSIS
     Dosage: 150 mg, Q2W
     Route: 042
     Dates: start: 200903

REACTIONS (3)
  - Nausea [Unknown]
  - Headache [Unknown]
  - Dizziness [Unknown]
